FAERS Safety Report 15804358 (Version 4)
Quarter: 2019Q4

REPORT INFORMATION
  Report Type: Spontaneous
  Country: US (occurrence: US)
  Receive Date: 20190109
  Receipt Date: 20191120
  Transmission Date: 20200122
  Serious: No
  Sender: FDA-Public Use
  Company Number: PHEH2019US000707

PATIENT
  Sex: Female

DRUGS (2)
  1. PROMACTA [Suspect]
     Active Substance: ELTROMBOPAG OLAMINE
     Indication: IMMUNE THROMBOCYTOPENIC PURPURA
     Dosage: 75 MG, QD
     Route: 048
     Dates: start: 20180822
  2. PROMACTA [Suspect]
     Active Substance: ELTROMBOPAG OLAMINE
     Dosage: 50 MG, QOD
     Route: 048

REACTIONS (10)
  - Platelet count decreased [Unknown]
  - Myalgia [Unknown]
  - Fatigue [Unknown]
  - Eye disorder [Recovered/Resolved]
  - Hypoaesthesia [Unknown]
  - Nasopharyngitis [Unknown]
  - Arthralgia [Unknown]
  - Full blood count decreased [Unknown]
  - Ocular discomfort [Unknown]
  - Headache [Unknown]
